FAERS Safety Report 6146397-6 (Version None)
Quarter: 2009Q2

REPORT INFORMATION
  Report Type: 
  Country: None (occurrence: None)
  Receive Date: 20090407
  Receipt Date: 20090407
  Transmission Date: 20091009
  Serious: Yes (Hospitalization)
  Sender: FDA-Public Use
  Company Number: PHHO2005CH04453

PATIENT
  Sex: Female
  Weight: 61 kg

DRUGS (5)
  1. CGS 20267 T30748+ [Suspect]
     Indication: BREAST CANCER
     Dosage: 2.5 MG, QD
     Route: 048
  2. CGS 20267 T30748+ [Suspect]
     Route: 048
     Dates: start: 20001124
  3. TAMOXIFEN CITRATE [Suspect]
     Dosage: 20 MG, QD- 2 YEARS
     Dates: start: 20001124
  4. VIOXX [Concomitant]
     Indication: OSTEOARTHRITIS
     Dates: start: 20000728
  5. CALCIMAGON [Concomitant]
     Indication: OSTEOPOROSIS
     Dates: start: 20000728

REACTIONS (3)
  - LAPAROSCOPIC SURGERY [None]
  - TUMOUR EXCISION [None]
  - UTERINE LEIOMYOMA [None]
